FAERS Safety Report 10360884 (Version 1)
Quarter: 2014Q3

REPORT INFORMATION
  Report Type: Report from Study
  Country: BR (occurrence: BR)
  Receive Date: 20140804
  Receipt Date: 20140804
  Transmission Date: 20150326
  Serious: Yes (Other)
  Sender: FDA-Public Use
  Company Number: PHHY2014BR095319

PATIENT
  Sex: Male
  Weight: 83 kg

DRUGS (3)
  1. TRILEPTAL [Suspect]
     Active Substance: OXCARBAZEPINE
     Indication: CONVULSION
     Dosage: 1 DF, QD
     Route: 048
  2. GARDENAL//PHENOBARBITAL [Concomitant]
     Active Substance: PHENOBARBITAL
     Indication: CONVULSION
     Dosage: UNK UKN, UNK
  3. TRILEPTAL [Suspect]
     Active Substance: OXCARBAZEPINE
     Dosage: 2 DF, UNK
     Route: 048

REACTIONS (4)
  - Musculoskeletal pain [Recovering/Resolving]
  - Depressed mood [Recovering/Resolving]
  - Convulsion [Recovering/Resolving]
  - Joint dislocation [Recovering/Resolving]
